FAERS Safety Report 4591665-2 (Version None)
Quarter: 2005Q1

REPORT INFORMATION
  Report Type: 
  Country: None (occurrence: None)
  Receive Date: 20050218
  Receipt Date: 20050208
  Transmission Date: 20050727
  Serious: Yes (Other)
  Sender: FDA-Public Use
  Company Number: 2005027353

PATIENT
  Age: 29 Year
  Sex: Female

DRUGS (5)
  1. LYRICA [Suspect]
     Indication: EPILEPSY
     Dosage: 600 MG (300 MG, 2 IN 1 D), ORAL
     Route: 048
  2. VALPROATE SODIUM [Concomitant]
  3. DURACOLL (COLLAGEN, GENTAMICIN SULFATE) [Concomitant]
  4. LAMOTRIGINE [Concomitant]
  5. LEVETIRACETAM [Concomitant]

REACTIONS (6)
  - BLOOD PRESSURE IMMEASURABLE [None]
  - CARDIAC DISORDER [None]
  - GRAND MAL CONVULSION [None]
  - LOSS OF CONSCIOUSNESS [None]
  - PULSE ABSENT [None]
  - RESPIRATORY RATE DECREASED [None]
